FAERS Safety Report 25899666 (Version 2)
Quarter: 2025Q4

REPORT INFORMATION
  Report Type: Report from Study
  Country: CN (occurrence: CN)
  Receive Date: 20251009
  Receipt Date: 20251231
  Transmission Date: 20260118
  Serious: Yes (Hospitalization, Other)
  Sender: JOHNSON AND JOHNSON
  Company Number: CN-JNJFOC-20251003643

PATIENT
  Age: 56 Year
  Sex: Male
  Weight: 70.65 kg

DRUGS (57)
  1. DARATUMUMAB [Suspect]
     Active Substance: DARATUMUMAB
     Indication: Plasma cell myeloma refractory
     Dates: start: 20250402, end: 20250403
  2. DARATUMUMAB [Suspect]
     Active Substance: DARATUMUMAB
     Dates: start: 20250409, end: 20250409
  3. DARATUMUMAB [Suspect]
     Active Substance: DARATUMUMAB
     Dates: start: 20250423, end: 20250423
  4. DARATUMUMAB [Suspect]
     Active Substance: DARATUMUMAB
     Dates: start: 20250430, end: 20250430
  5. DARATUMUMAB [Suspect]
     Active Substance: DARATUMUMAB
     Dates: start: 20250506, end: 20250506
  6. DARATUMUMAB [Suspect]
     Active Substance: DARATUMUMAB
     Dates: start: 20250521, end: 20250521
  7. DARATUMUMAB [Suspect]
     Active Substance: DARATUMUMAB
     Dates: start: 20250529, end: 20250529
  8. DARATUMUMAB [Suspect]
     Active Substance: DARATUMUMAB
     Dates: start: 20250612, end: 20250612
  9. DARATUMUMAB [Suspect]
     Active Substance: DARATUMUMAB
     Dates: start: 20250625, end: 20250625
  10. DARATUMUMAB [Suspect]
     Active Substance: DARATUMUMAB
     Dates: start: 20250709, end: 20250709
  11. DARATUMUMAB [Suspect]
     Active Substance: DARATUMUMAB
     Dates: start: 20250723, end: 20250723
  12. DARATUMUMAB [Suspect]
     Active Substance: DARATUMUMAB
     Dates: start: 20250806, end: 20250806
  13. DARATUMUMAB [Suspect]
     Active Substance: DARATUMUMAB
     Dates: start: 20250820, end: 20250820
  14. DARATUMUMAB [Suspect]
     Active Substance: DARATUMUMAB
     Dates: start: 20250903, end: 20250903
  15. DARATUMUMAB [Suspect]
     Active Substance: DARATUMUMAB
     Dates: start: 20251015, end: 20251015
  16. DARATUMUMAB [Suspect]
     Active Substance: DARATUMUMAB
     Dates: start: 20251112, end: 20251112
  17. DARATUMUMAB [Suspect]
     Active Substance: DARATUMUMAB
     Dates: start: 20251210, end: 20251210
  18. POMALIDOMIDE [Suspect]
     Active Substance: POMALIDOMIDE
     Indication: Plasma cell myeloma refractory
     Dosage: DAY 01- TO DAY21
     Route: 048
     Dates: start: 20250529, end: 20250618
  19. POMALIDOMIDE [Suspect]
     Active Substance: POMALIDOMIDE
     Dosage: DAY 01- TO DAY21
     Route: 048
     Dates: start: 20250723, end: 20250812
  20. POMALIDOMIDE [Suspect]
     Active Substance: POMALIDOMIDE
     Dosage: DAY 01- TO DAY21
     Route: 048
     Dates: start: 20250820, end: 20250909
  21. POMALIDOMIDE [Suspect]
     Active Substance: POMALIDOMIDE
     Dosage: DAY 01- TO DAY21
     Route: 048
     Dates: start: 20250402, end: 20250413
  22. POMALIDOMIDE [Suspect]
     Active Substance: POMALIDOMIDE
     Dosage: DAY 01- TO DAY21
     Route: 048
     Dates: start: 20250625, end: 20250715
  23. POMALIDOMIDE [Suspect]
     Active Substance: POMALIDOMIDE
     Dosage: DAY 01- TO DAY21
     Route: 048
     Dates: start: 20251112, end: 20251202
  24. POMALIDOMIDE [Suspect]
     Active Substance: POMALIDOMIDE
     Dosage: DAY 01- TO DAY21
     Route: 048
     Dates: start: 20251015, end: 20251104
  25. DEXAMETHASONE SODIUM PHOSPHATE [Suspect]
     Active Substance: DEXAMETHASONE SODIUM PHOSPHATE
     Indication: Plasma cell myeloma refractory
     Route: 042
     Dates: start: 20250409, end: 20250409
  26. DEXAMETHASONE SODIUM PHOSPHATE [Suspect]
     Active Substance: DEXAMETHASONE SODIUM PHOSPHATE
     Route: 042
     Dates: start: 20250423, end: 20250423
  27. DEXAMETHASONE SODIUM PHOSPHATE [Suspect]
     Active Substance: DEXAMETHASONE SODIUM PHOSPHATE
     Route: 042
     Dates: start: 20250430, end: 20250430
  28. DEXAMETHASONE SODIUM PHOSPHATE [Suspect]
     Active Substance: DEXAMETHASONE SODIUM PHOSPHATE
     Route: 042
     Dates: start: 20250506, end: 20250506
  29. DEXAMETHASONE SODIUM PHOSPHATE [Suspect]
     Active Substance: DEXAMETHASONE SODIUM PHOSPHATE
     Route: 042
     Dates: start: 20250521, end: 20250521
  30. DEXAMETHASONE SODIUM PHOSPHATE [Suspect]
     Active Substance: DEXAMETHASONE SODIUM PHOSPHATE
     Route: 042
     Dates: start: 20250529, end: 20250529
  31. DEXAMETHASONE SODIUM PHOSPHATE [Suspect]
     Active Substance: DEXAMETHASONE SODIUM PHOSPHATE
     Route: 042
     Dates: start: 20250612, end: 20250612
  32. DEXAMETHASONE SODIUM PHOSPHATE [Suspect]
     Active Substance: DEXAMETHASONE SODIUM PHOSPHATE
     Route: 042
     Dates: start: 20250625, end: 20250625
  33. DEXAMETHASONE SODIUM PHOSPHATE [Suspect]
     Active Substance: DEXAMETHASONE SODIUM PHOSPHATE
     Route: 042
     Dates: start: 20250402, end: 20250402
  34. DEXAMETHASONE SODIUM PHOSPHATE [Suspect]
     Active Substance: DEXAMETHASONE SODIUM PHOSPHATE
     Route: 042
     Dates: start: 20250709, end: 20250709
  35. DEXAMETHASONE SODIUM PHOSPHATE [Suspect]
     Active Substance: DEXAMETHASONE SODIUM PHOSPHATE
     Route: 042
     Dates: start: 20250723, end: 20250723
  36. DEXAMETHASONE SODIUM PHOSPHATE [Suspect]
     Active Substance: DEXAMETHASONE SODIUM PHOSPHATE
     Route: 042
     Dates: start: 20250806, end: 20250806
  37. DEXAMETHASONE SODIUM PHOSPHATE [Suspect]
     Active Substance: DEXAMETHASONE SODIUM PHOSPHATE
     Route: 042
     Dates: start: 20250820, end: 20250820
  38. DEXAMETHASONE SODIUM PHOSPHATE [Suspect]
     Active Substance: DEXAMETHASONE SODIUM PHOSPHATE
     Route: 042
     Dates: start: 20250903, end: 20250903
  39. DEXAMETHASONE SODIUM PHOSPHATE [Suspect]
     Active Substance: DEXAMETHASONE SODIUM PHOSPHATE
     Route: 042
     Dates: start: 20251015, end: 20251015
  40. DEXAMETHASONE SODIUM PHOSPHATE [Suspect]
     Active Substance: DEXAMETHASONE SODIUM PHOSPHATE
     Route: 042
     Dates: start: 20251112, end: 20251112
  41. DEXAMETHASONE SODIUM PHOSPHATE [Suspect]
     Active Substance: DEXAMETHASONE SODIUM PHOSPHATE
     Route: 042
     Dates: start: 20251210, end: 20251210
  42. DEXAMETHASONE ACETATE [Suspect]
     Active Substance: DEXAMETHASONE ACETATE
     Indication: Plasma cell myeloma refractory
     Route: 048
     Dates: start: 20250402, end: 20250402
  43. DEXAMETHASONE ACETATE [Suspect]
     Active Substance: DEXAMETHASONE ACETATE
     Route: 048
     Dates: start: 20250410, end: 20250410
  44. DEXAMETHASONE ACETATE [Suspect]
     Active Substance: DEXAMETHASONE ACETATE
     Route: 048
     Dates: start: 20250424, end: 20250424
  45. DEXAMETHASONE ACETATE [Suspect]
     Active Substance: DEXAMETHASONE ACETATE
     Route: 048
     Dates: start: 20250530, end: 20250530
  46. DEXAMETHASONE ACETATE [Suspect]
     Active Substance: DEXAMETHASONE ACETATE
     Route: 048
     Dates: start: 20250626, end: 20250626
  47. DEXAMETHASONE ACETATE [Suspect]
     Active Substance: DEXAMETHASONE ACETATE
     Route: 048
     Dates: start: 20250724, end: 20250724
  48. DEXAMETHASONE ACETATE [Suspect]
     Active Substance: DEXAMETHASONE ACETATE
     Route: 048
     Dates: start: 20250821, end: 20250821
  49. DEXAMETHASONE ACETATE [Suspect]
     Active Substance: DEXAMETHASONE ACETATE
     Route: 048
     Dates: start: 20251016, end: 20251106
  50. DEXAMETHASONE ACETATE [Suspect]
     Active Substance: DEXAMETHASONE ACETATE
     Route: 048
     Dates: start: 20251113, end: 20251204
  51. EVOLOCUMAB [Concomitant]
     Active Substance: EVOLOCUMAB
     Indication: Hepatic steatosis
     Dosage: SINCE 2021
     Route: 058
  52. EVOLOCUMAB [Concomitant]
     Active Substance: EVOLOCUMAB
     Dosage: SINCE 2021
     Route: 058
  53. CLOPIDOGREL BISULFATE [Concomitant]
     Active Substance: CLOPIDOGREL BISULFATE
     Indication: Thrombosis prophylaxis
     Route: 048
  54. CLOPIDOGREL BISULFATE [Concomitant]
     Active Substance: CLOPIDOGREL BISULFATE
     Route: 048
  55. CALCIUM CARBONATE\CHOLECALCIFEROL [Concomitant]
     Active Substance: CALCIUM CARBONATE\CHOLECALCIFEROL
     Indication: Mineral supplementation
     Dosage: SINCE NOV-2021
     Route: 048
     Dates: start: 202111
  56. CALCITRIOL [Concomitant]
     Active Substance: CALCITRIOL
     Indication: Mineral supplementation
     Dosage: SINCE NOV-2021
     Route: 048
     Dates: start: 202111
  57. POTASSIUM CHLORIDE [Concomitant]
     Active Substance: POTASSIUM CHLORIDE
     Indication: Hyperkalaemia
     Route: 048
     Dates: start: 20250911

REACTIONS (3)
  - Diabetes mellitus [Not Recovered/Not Resolved]
  - Pneumonia [Unknown]
  - Neutrophil count decreased [Unknown]

NARRATIVE: CASE EVENT DATE: 20250904
